FAERS Safety Report 22077954 (Version 1)
Quarter: 2023Q1

REPORT INFORMATION
  Report Type: Spontaneous
  Country: US (occurrence: US)
  Receive Date: 20230309
  Receipt Date: 20230309
  Transmission Date: 20230418
  Serious: Yes (Hospitalization, Other)
  Sender: FDA-Public Use
  Company Number: US-CLOVIS ONCOLOGY-CLO-2023-000193

PATIENT
  Sex: Female
  Weight: 54.875 kg

DRUGS (17)
  1. RUBRACA [Suspect]
     Active Substance: RUCAPARIB CAMSYLATE
     Indication: Ovarian cancer
     Dosage: 600 MILLIGRAM, BID
     Route: 048
     Dates: start: 20230216
  2. RUBRACA [Suspect]
     Active Substance: RUCAPARIB CAMSYLATE
     Indication: Metastases to lung
  3. ELIQUIS [Concomitant]
     Active Substance: APIXABAN
     Indication: Product used for unknown indication
     Dosage: 2.5 MG TABLET, UNK
  4. LEVOTHYROXINE [Concomitant]
     Active Substance: LEVOTHYROXINE
     Indication: Product used for unknown indication
     Dosage: 100 MCG CAPSULE, UNK
  5. LOSARTAN POTASSIUM [Concomitant]
     Active Substance: LOSARTAN POTASSIUM
     Indication: Product used for unknown indication
     Dosage: 100 MG TABLET, UNK
  6. SIMVASTATIN [Concomitant]
     Active Substance: SIMVASTATIN
     Indication: Product used for unknown indication
     Dosage: 10 MG TABLET, UNK
  7. ZYRTEC-D [Concomitant]
     Active Substance: CETIRIZINE HYDROCHLORIDE\PSEUDOEPHEDRINE HYDROCHLORIDE
     Indication: Product used for unknown indication
     Dosage: 5 MG-120MG TAB.SR 12H, UNK
  8. FLUOXETINE HYDROCHLORIDE [Concomitant]
     Active Substance: FLUOXETINE HYDROCHLORIDE
     Indication: Product used for unknown indication
     Dosage: 20 MG CAPSULE, UNK
  9. SODIUM CHLORIDE [Concomitant]
     Active Substance: SODIUM CHLORIDE
     Indication: Product used for unknown indication
     Dosage: 1000 MG TABLET SOL, UNK
  10. POTASSIUM CHLORIDE [Concomitant]
     Active Substance: POTASSIUM CHLORIDE
     Indication: Product used for unknown indication
  11. FISH OIL [Concomitant]
     Active Substance: FISH OIL
     Indication: Product used for unknown indication
     Dosage: 1200 MG CAPSULE, UNK
  12. VITAMIN D3 [Concomitant]
     Active Substance: CHOLECALCIFEROL
     Indication: Product used for unknown indication
     Dosage: 25 MCG CAPSULE, UNK
  13. CALCIUM [Suspect]
     Active Substance: CALCIUM
     Indication: Product used for unknown indication
     Dosage: 600 MG TABLET, UNK
  14. BIOTIN [Concomitant]
     Active Substance: BIOTIN
     Indication: Product used for unknown indication
     Dosage: 10 MG TABLET, UNK
  15. METAMUCIL THERAPY FOR REGULARITY [Concomitant]
     Active Substance: PSYLLIUM HUSK
     Indication: Product used for unknown indication
     Dosage: 0.4 G CAPSULE, UNK
  16. COLACE [Concomitant]
     Active Substance: DOCUSATE SODIUM
     Indication: Product used for unknown indication
     Dosage: 100 MG CAPSULE, UNK
  17. KEYTRUDA [Concomitant]
     Active Substance: PEMBROLIZUMAB
     Indication: Product used for unknown indication
     Dosage: 100 MG/4ML VIAL, UNK

REACTIONS (3)
  - Sepsis [Recovered/Resolved]
  - Pruritus [Recovered/Resolved]
  - Fatigue [Recovered/Resolved]
